FAERS Safety Report 8333944-9 (Version None)
Quarter: 2012Q2

REPORT INFORMATION
  Report Type: 
  Country: None (occurrence: None)
  Receive Date: 20120503
  Receipt Date: 20120427
  Transmission Date: 20120825
  Serious: Yes (Death, Other)
  Sender: FDA-Public Use
  Company Number: DE-ROCHE-1064295

PATIENT
  Age: 43 Year
  Sex: Female

DRUGS (2)
  1. CISPLATIN [Concomitant]
     Indication: BREAST CANCER
  2. XELODA [Suspect]
     Indication: BREAST CANCER

REACTIONS (5)
  - AGRANULOCYTOSIS [None]
  - FEBRILE NEUTROPENIA [None]
  - DIARRHOEA [None]
  - SEPSIS [None]
  - PALMAR-PLANTAR ERYTHRODYSAESTHESIA SYNDROME [None]
